FAERS Safety Report 15292359 (Version 1)
Quarter: 2018Q3

REPORT INFORMATION
  Report Type: Spontaneous
  Country: US (occurrence: US)
  Receive Date: 20180806
  Receipt Date: 20180806
  Transmission Date: 20181010
  Serious: Yes (Disabling)
  Sender: FDA-Public Use
  Company Number: None

PATIENT
  Age: 62 Year
  Sex: Male
  Weight: 114.75 kg

DRUGS (2)
  1. HUMULIN NOS [Concomitant]
     Active Substance: INSULIN HUMAN
  2. LEVEMIR [Suspect]
     Active Substance: INSULIN DETEMIR
     Indication: HYPERGLYCAEMIA
     Dosage: ?          QUANTITY:1 INJECTION(S);?
     Route: 058
     Dates: start: 20170920, end: 20171130

REACTIONS (1)
  - Obesity [None]

NARRATIVE: CASE EVENT DATE: 20171025
